FAERS Safety Report 11614091 (Version 2)
Quarter: 2015Q4

REPORT INFORMATION
  Report Type: Report from Study
  Country: FR (occurrence: FR)
  Receive Date: 20151008
  Receipt Date: 20151009
  Transmission Date: 20160304
  Serious: Yes (Hospitalization, Other)
  Sender: FDA-Public Use
  Company Number: FR-ABBVIE-15P-056-1451074-00

PATIENT
  Age: 47 Year
  Sex: Female
  Weight: 70 kg

DRUGS (3)
  1. DUODOPA [Suspect]
     Active Substance: CARBIDOPA\LEVODOPA
     Indication: PARKINSON^S DISEASE
     Dosage: 10MG/HOUR
     Route: 050
     Dates: start: 20150717, end: 20150804
  2. DOMPERIDONE [Concomitant]
     Active Substance: DOMPERIDONE
     Indication: PARKINSON^S DISEASE
     Route: 048
  3. NEUPRO [Concomitant]
     Active Substance: ROTIGOTINE
     Indication: PARKINSON^S DISEASE
     Route: 062

REACTIONS (9)
  - Abdominal rigidity [Recovering/Resolving]
  - Abdominal wall abscess [Recovered/Resolved]
  - Stoma site infection [Recovering/Resolving]
  - Abdominal pain [Recovering/Resolving]
  - Stoma site discharge [Recovered/Resolved]
  - Device issue [Unknown]
  - Stoma site erythema [Recovered/Resolved]
  - Abdominal distension [Recovering/Resolving]
  - Device dislocation [Recovered/Resolved]

NARRATIVE: CASE EVENT DATE: 20150803
